FAERS Safety Report 4643875-3 (Version None)
Quarter: 2005Q2

REPORT INFORMATION
  Report Type: 
  Country: None (occurrence: None)
  Receive Date: 20050425
  Receipt Date: 20050412
  Transmission Date: 20051028
  Serious: Yes (Other)
  Sender: FDA-Public Use
  Company Number: 2184335

PATIENT
  Age: 45 Year
  Sex: Male
  Weight: 86.4 kg

DRUGS (2)
  1. NICORETTE [Suspect]
     Indication: SMOKING CESSATION THERAPY
     Route: 002
     Dates: start: 19970101, end: 19980101
  2. NICORETTE [Suspect]
     Route: 002
     Dates: start: 20040601

REACTIONS (9)
  - DEPENDENCE [None]
  - DRUG ABUSER [None]
  - DRUG INEFFECTIVE [None]
  - DYSGEUSIA [None]
  - ILL-DEFINED DISORDER [None]
  - INSOMNIA [None]
  - PAIN IN EXTREMITY [None]
  - PHARMACEUTICAL PRODUCT COMPLAINT [None]
  - SCIATICA [None]
